FAERS Safety Report 5853441-X (Version None)
Quarter: 2008Q3

REPORT INFORMATION
  Report Type: 
  Country: None (occurrence: None)
  Receive Date: 20080820
  Receipt Date: 20080813
  Transmission Date: 20090109
  Serious: Yes (Other)
  Sender: FDA-Public Use
  Company Number: 2008SP016454

PATIENT
  Sex: Male

DRUGS (1)
  1. PEGETRON (PEGINTERFERON ALFA-2B W RIBAVIRIN) (PEGYLATED INTERFERON ALF [Suspect]
     Indication: DRUG USE FOR UNKNOWN INDICATION
     Dosage: PO ; SC
     Route: 048

REACTIONS (3)
  - DIABETES MELLITUS [None]
  - HEADACHE [None]
  - HYPERTENSION [None]
